FAERS Safety Report 8403247 (Version 2)
Quarter: 2013Q1

REPORT INFORMATION
  Report Type: Spontaneous
  Country: CA (occurrence: CA)
  Receive Date: 20120213
  Receipt Date: 20130218
  Transmission Date: 20140127
  Serious: Yes (Other)
  Sender: FDA-Public Use
  Company Number: PHHY2012CA011326

PATIENT
  Sex: Female

DRUGS (5)
  1. ACLASTA [Suspect]
     Dosage: UNK UKN, UNK
     Route: 042
     Dates: start: 20090323
  2. ACLASTA [Suspect]
     Dosage: UNK UKN, UNK
     Route: 042
     Dates: start: 20100331
  3. ACLASTA [Suspect]
     Dosage: UNK UKN, UNK
     Route: 042
     Dates: start: 20110329
  4. ACLASTA [Suspect]
     Dosage: UNK UKN, UNK
     Route: 042
     Dates: start: 20120328
  5. COUMADINE [Concomitant]
     Dosage: UNK UKN, UNK

REACTIONS (6)
  - Road traffic accident [Unknown]
  - Lower limb fracture [Unknown]
  - Tibia fracture [Unknown]
  - Vein disorder [Unknown]
  - Product quality issue [Unknown]
  - Drug administration error [Unknown]
